FAERS Safety Report 10483427 (Version 1)
Quarter: 2014Q3

REPORT INFORMATION
  Report Type: Report from Study
  Country: US (occurrence: US)
  Receive Date: 20140930
  Receipt Date: 20140930
  Transmission Date: 20150326
  Serious: No
  Sender: FDA-Public Use
  Company Number: US-ALEXION-A201203123

PATIENT
  Sex: Male

DRUGS (1)
  1. SOLIRIS [Suspect]
     Active Substance: ECULIZUMAB

REACTIONS (6)
  - Platelet count increased [Unknown]
  - Fatigue [Unknown]
  - Haemoglobinuria [Unknown]
  - Headache [Unknown]
  - Cognitive disorder [Unknown]
  - Transfusion [Unknown]
